FAERS Safety Report 8969211 (Version 1)
Quarter: 2012Q4

REPORT INFORMATION
  Report Type: 
  Country: US (occurrence: US)
  Receive Date: 20121218
  Receipt Date: 20121218
  Transmission Date: 20130627
  Serious: Yes (Hospitalization)
  Sender: FDA-Public Use
  Company Number: US-BRISTOL-MYERS SQUIBB COMPANY-16313611

PATIENT
  Age: 36 Year
  Sex: Female

DRUGS (5)
  1. ABILIFY [Suspect]
     Dosage: stopped : October  switched :2010
     Dates: start: 200911
  2. EFFEXOR [Concomitant]
  3. MORPHINE SULFATE [Concomitant]
  4. KLONOPIN [Concomitant]
  5. CYMBALTA [Concomitant]

REACTIONS (1)
  - Dyskinesia [Not Recovered/Not Resolved]
